FAERS Safety Report 7945977-2 (Version None)
Quarter: 2011Q4

REPORT INFORMATION
  Report Type: 
  Country: None (occurrence: None)
  Receive Date: 20111129
  Receipt Date: 20111118
  Transmission Date: 20120403
  Serious: Yes (Death, Hospitalization)
  Sender: FDA-Public Use
  Company Number: GB-PERRIGO-11GB009309

PATIENT
  Age: 25 Year
  Sex: Female

DRUGS (6)
  1. COUGH MEDICINE [Suspect]
     Indication: NASOPHARYNGITIS
     Dosage: UNK
     Route: 048
     Dates: start: 20101221
  2. ACETAMINOPHEN [Suspect]
     Indication: NASOPHARYNGITIS
     Dosage: UNK
     Route: 048
     Dates: start: 20101221
  3. LEMSIP WITH PHENYLEPHRINE [Suspect]
     Indication: NASOPHARYNGITIS
     Dosage: UNK
     Route: 048
     Dates: start: 20101221
  4. ANTIBIOTICS [Concomitant]
     Indication: LOWER RESPIRATORY TRACT INFECTION
     Dosage: UNK
     Route: 065
     Dates: start: 20101231
  5. ACETAMINOPHEN AND CODEINE PHOSPHATE [Concomitant]
     Indication: PHARYNGITIS STREPTOCOCCAL
     Dosage: UNK
     Route: 048
  6. IBUPROFEN [Suspect]
     Indication: NASOPHARYNGITIS
     Dosage: UNK
     Route: 048

REACTIONS (18)
  - ABNORMAL BEHAVIOUR [None]
  - PHARYNGITIS STREPTOCOCCAL [None]
  - MOUTH CYST [None]
  - JAUNDICE [None]
  - MEMORY IMPAIRMENT [None]
  - GAIT DISTURBANCE [None]
  - OVERDOSE [None]
  - VOMITING [None]
  - PHARYNGEAL ERYTHEMA [None]
  - RESTLESSNESS [None]
  - CYST [None]
  - DYSPHAGIA [None]
  - DRUG ADMINISTRATION ERROR [None]
  - HALLUCINATION [None]
  - HEPATIC FAILURE [None]
  - HEPATIC NECROSIS [None]
  - CHROMATURIA [None]
  - APHTHOUS STOMATITIS [None]
